FAERS Safety Report 4357728-1 (Version None)
Quarter: 2004Q2

REPORT INFORMATION
  Report Type: 
  Country: None (occurrence: None)
  Receive Date: 20040513
  Receipt Date: 20040428
  Transmission Date: 20050107
  Serious: Yes (Other)
  Sender: FDA-Public Use
  Company Number: JP-GLAXOSMITHKLINE-B0332517A

PATIENT
  Age: 57 Year
  Sex: Male

DRUGS (3)
  1. EPIVIR [Suspect]
     Route: 048
     Dates: start: 20000501
  2. RETROVIR [Suspect]
     Route: 048
     Dates: start: 20000501, end: 20000901
  3. CRIXIVAN [Suspect]
     Route: 048
     Dates: start: 20000501

REACTIONS (2)
  - CONDITION AGGRAVATED [None]
  - NEPHROLITHIASIS [None]
